FAERS Safety Report 20755314 (Version 1)
Quarter: 2022Q2

REPORT INFORMATION
  Report Type: Spontaneous
  Country: US (occurrence: US)
  Receive Date: 20220427
  Receipt Date: 20220427
  Transmission Date: 20220721
  Serious: No
  Sender: FDA-Public Use
  Company Number: US-ALLERGAN-2134432US

PATIENT
  Sex: Male
  Weight: 77.11 kg

DRUGS (1)
  1. TIMOLOL MALEATE [Suspect]
     Active Substance: TIMOLOL MALEATE
     Indication: Intraocular pressure increased
     Dosage: 1 GTT, QD
     Route: 047

REACTIONS (2)
  - Product delivery mechanism issue [Unknown]
  - Incorrect dose administered [Unknown]
